FAERS Safety Report 12995164 (Version 1)
Quarter: 2016Q4

REPORT INFORMATION
  Report Type: Report from Study
  Country: TW (occurrence: TW)
  Receive Date: 20161202
  Receipt Date: 20161202
  Transmission Date: 20170207
  Serious: Yes (Hospitalization)
  Sender: FDA-Public Use
  Company Number: TW-NOVOPROD-519964

PATIENT
  Age: 39 Year
  Sex: Male
  Weight: 74 kg

DRUGS (6)
  1. NOVOMIX 30 FLEXPEN [Suspect]
     Active Substance: INSULIN ASPART
     Indication: TYPE 2 DIABETES MELLITUS
     Dosage: 127 U, UNK
     Route: 058
     Dates: start: 20160606
  2. NOVOMIX 30 [Concomitant]
     Active Substance: INSULIN ASPART
     Indication: TYPE 2 DIABETES MELLITUS
     Dosage: 126 U, TID
     Route: 058
     Dates: start: 20161121
  3. METFORMIN [Concomitant]
     Active Substance: METFORMIN HYDROCHLORIDE
     Indication: TYPE 2 DIABETES MELLITUS
     Dosage: 1500 MG, TID
     Route: 048
     Dates: start: 20151222
  4. ACTRAPID [Concomitant]
     Active Substance: INSULIN HUMAN
     Indication: TYPE 2 DIABETES MELLITUS
     Dosage: 5 IU, STAT
     Route: 058
     Dates: start: 20161116, end: 20161117
  5. GLYBURIDE. [Concomitant]
     Active Substance: GLYBURIDE
     Indication: TYPE 2 DIABETES MELLITUS
     Dosage: 15 MG, TID
     Route: 048
     Dates: start: 20150331, end: 20160605
  6. LEVEMIR FLEXPEN 100IU/ML 3ML [Concomitant]
     Indication: TYPE 2 DIABETES MELLITUS
     Dosage: 37 IU, QD
     Route: 058
     Dates: start: 20150428, end: 20160605

REACTIONS (2)
  - Diabetic retinopathy [Recovering/Resolving]
  - Vitreous haemorrhage [Recovering/Resolving]

NARRATIVE: CASE EVENT DATE: 20161017
